FAERS Safety Report 12318640 (Version 3)
Quarter: 2016Q3

REPORT INFORMATION
  Report Type: Spontaneous
  Country: US (occurrence: US)
  Receive Date: 20160429
  Receipt Date: 20160906
  Transmission Date: 20161109
  Serious: Yes (Hospitalization)
  Sender: FDA-Public Use
  Company Number: US-SA-2016SA083353

PATIENT
  Age: 66 Year
  Sex: Female
  Weight: 85.7 kg

DRUGS (5)
  1. LANTUS SOLOSTAR [Suspect]
     Active Substance: INSULIN GLARGINE
     Indication: TYPE 2 DIABETES MELLITUS
     Dosage: DOSE:70 UNIT(S)
     Route: 065
  2. RAMIPRIL. [Concomitant]
     Active Substance: RAMIPRIL
  3. LANTUS SOLOSTAR [Suspect]
     Active Substance: INSULIN GLARGINE
     Indication: TYPE 2 DIABETES MELLITUS
     Dosage: DOSE:35 UNIT(S)
     Route: 065
  4. GABAPENTIN. [Concomitant]
     Active Substance: GABAPENTIN
  5. SOLOSTAR [Concomitant]
     Active Substance: DEVICE

REACTIONS (6)
  - Trigeminal neuralgia [Unknown]
  - Urinary tract infection [Unknown]
  - Blood sodium decreased [Unknown]
  - Incorrect product storage [Unknown]
  - Amnesia [Unknown]
  - Blood glucose increased [Unknown]
